FAERS Safety Report 6601719-4 (Version None)
Quarter: 2010Q1

REPORT INFORMATION
  Report Type: 
  Country: None (occurrence: None)
  Receive Date: 20100225
  Receipt Date: 20100217
  Transmission Date: 20100710
  Serious: Yes (Hospitalization, Other)
  Sender: FDA-Public Use
  Company Number: US-BAYER-200936285NA

PATIENT
  Age: 24 Year
  Sex: Female
  Weight: 77 kg

DRUGS (1)
  1. MIRENA [Suspect]
     Indication: CONTRACEPTION
     Dosage: CONTINUOUS
     Route: 015
     Dates: start: 20080201, end: 20091001

REACTIONS (5)
  - ABDOMINAL PAIN LOWER [None]
  - DEVICE DISLOCATION [None]
  - DYSMENORRHOEA [None]
  - DYSPAREUNIA [None]
  - VAGINAL HAEMORRHAGE [None]
